FAERS Safety Report 10360717 (Version 1)
Quarter: 2014Q3

REPORT INFORMATION
  Report Type: Spontaneous
  Country: CH (occurrence: CH)
  Receive Date: 20140804
  Receipt Date: 20140804
  Transmission Date: 20150326
  Serious: Yes (Other)
  Sender: FDA-Public Use
  Company Number: CH-TEVA-497574ISR

PATIENT
  Age: 26 Year
  Sex: Male

DRUGS (18)
  1. ESIDREX [Concomitant]
     Active Substance: HYDROCHLOROTHIAZIDE
     Route: 065
     Dates: start: 20140422, end: 20140425
  2. PROPOFOL. [Concomitant]
     Active Substance: PROPOFOL
     Route: 065
  3. RANITIDINE [Suspect]
     Active Substance: RANITIDINE\RANITIDINE HYDROCHLORIDE
     Dosage: 150 MILLIGRAM DAILY; START DATE UNCERTAIN, STARTED BETWEEN 14-APR-2014 AND 18-APR-2014
     Route: 040
     Dates: start: 201404, end: 20140425
  4. MERONEM [Suspect]
     Active Substance: MEROPENEM
     Dosage: 4 GRAM DAILY;
     Route: 040
     Dates: start: 20140418, end: 20140420
  5. PARACETAMOL [Concomitant]
     Active Substance: ACETAMINOPHEN
     Route: 065
  6. VANCOMYCIN [Suspect]
     Active Substance: VANCOMYCIN
     Dosage: 1 GRAM DAILY;
     Route: 040
     Dates: start: 20140418, end: 20140419
  7. PIPERACILLIN AND TAZOBACTAM [Suspect]
     Active Substance: PIPERACILLIN SODIUM\TAZOBACTAM SODIUM
     Dosage: 18 GRAM DAILY; SHORT-TERM, STOP DATE UNKNOWN
     Route: 040
     Dates: start: 20140422
  8. LIQUEMIN [Suspect]
     Active Substance: HEPARIN SODIUM
     Dosage: START DATE UNCERTAIN, STARTED BETWEEN 14-APR-2014 AND 18-APR-2014
     Route: 065
     Dates: start: 201404, end: 20140421
  9. ALDACTONE [Concomitant]
     Active Substance: SPIRONOLACTONE
     Dosage: STOP DATE UNKNOWN, STILL ONGOING AS OF 25-APR-2014
     Route: 065
     Dates: start: 20140422
  10. VANCOMYCIN [Suspect]
     Active Substance: VANCOMYCIN
     Dosage: 2 GRAM DAILY;
     Route: 041
     Dates: start: 20140421, end: 20140422
  11. LEVOFLOXACIN [Concomitant]
     Active Substance: LEVOFLOXACIN
     Dosage: 250 MILLIGRAM DAILY;
     Route: 040
     Dates: start: 20140418, end: 20140419
  12. ALDACTONE [Concomitant]
     Active Substance: SPIRONOLACTONE
     Dosage: 1 SINGLE DOSE
     Route: 065
     Dates: start: 20140419, end: 20140419
  13. FENTANYL. [Concomitant]
     Active Substance: FENTANYL
     Route: 065
  14. VANCOMYCIN [Suspect]
     Active Substance: VANCOMYCIN
     Dosage: 1 GRAM DAILY;
     Route: 040
     Dates: start: 20140421, end: 20140421
  15. DOXYCYCLINE. [Concomitant]
     Active Substance: DOXYCYCLINE
     Dosage: 200 MILLIGRAM DAILY; STOP DATE UNKNOWN
     Route: 065
     Dates: start: 20140419
  16. LEVOFLOXACIN [Concomitant]
     Active Substance: LEVOFLOXACIN
     Dosage: 500 MILLIGRAM DAILY;
     Route: 040
     Dates: start: 20140420, end: 20140424
  17. MIDAZOLAM [Concomitant]
     Active Substance: MIDAZOLAM\MIDAZOLAM HYDROCHLORIDE
     Route: 065
  18. FOLIC ACID. [Concomitant]
     Active Substance: FOLIC ACID
     Dosage: STOP DATE UNKNOWN, AS OF 25-APR-2014 STILL ONGOING
     Route: 065
     Dates: start: 20140423

REACTIONS (4)
  - Retinal haemorrhage [Unknown]
  - Anaemia [Unknown]
  - Shock [Unknown]
  - Thrombocytopenia [Recovered/Resolved]

NARRATIVE: CASE EVENT DATE: 2014
